FAERS Safety Report 23580578 (Version 6)
Quarter: 2025Q1

REPORT INFORMATION
  Report Type: Report from Study
  Country: CA (occurrence: CA)
  Receive Date: 20240229
  Receipt Date: 20250207
  Transmission Date: 20250409
  Serious: Yes (Other)
  Sender: OTSUKA
  Company Number: CA-OTSUKA-2024_002410

PATIENT
  Sex: Female

DRUGS (2)
  1. ARIPIPRAZOLE [Suspect]
     Active Substance: ARIPIPRAZOLE
     Indication: Product used for unknown indication
     Route: 030
  2. ARIPIPRAZOLE [Suspect]
     Active Substance: ARIPIPRAZOLE
     Dosage: 400 MG, QM
     Route: 030

REACTIONS (12)
  - Hallucination, auditory [Not Recovered/Not Resolved]
  - Tearfulness [Not Recovered/Not Resolved]
  - Amnesia [Unknown]
  - Paranoia [Not Recovered/Not Resolved]
  - Fear [Not Recovered/Not Resolved]
  - Hand fracture [Recovering/Resolving]
  - Facial pain [Recovering/Resolving]
  - Contusion [Recovering/Resolving]
  - Inappropriate schedule of product administration [Unknown]
  - Substance use [Unknown]
  - Treatment noncompliance [Recovering/Resolving]
  - Product dose omission issue [Not Recovered/Not Resolved]
